FAERS Safety Report 5351228-8 (Version None)
Quarter: 2007Q2

REPORT INFORMATION
  Report Type: 
  Country: None (occurrence: None)
  Receive Date: 20070521
  Receipt Date: 20070330
  Transmission Date: 20071010
  Serious: No
  Sender: FDA-Public Use
  Company Number: WAES 0704USA00113

PATIENT
  Age: 82 Year
  Sex: Female

DRUGS (3)
  1. JANUVIA [Suspect]
     Indication: DIABETES MELLITUS
     Dosage: 100 MG/DAILY/PO
     Route: 048
     Dates: start: 20070309
  2. BENICAR [Concomitant]
  3. LIPITOR [Concomitant]

REACTIONS (4)
  - DYSPHONIA [None]
  - HEADACHE [None]
  - PHARYNGOLARYNGEAL PAIN [None]
  - RHINORRHOEA [None]
